FAERS Safety Report 23831039 (Version 4)
Quarter: 2024Q3

REPORT INFORMATION
  Report Type: Spontaneous
  Country: US (occurrence: US)
  Receive Date: 20240508
  Receipt Date: 20240731
  Transmission Date: 20241016
  Serious: Yes (Other)
  Sender: PFIZER
  Company Number: US-PFIZER INC-PV202400059810

PATIENT
  Age: 59 Year
  Sex: Female

DRUGS (1)
  1. XELJANZ XR [Suspect]
     Active Substance: TOFACITINIB CITRATE
     Dosage: 11 MG

REACTIONS (7)
  - Cataract [Unknown]
  - Drug ineffective [Unknown]
  - Headache [Unknown]
  - Vision blurred [Unknown]
  - Irritable bowel syndrome [Unknown]
  - Throat irritation [Unknown]
  - Arthralgia [Not Recovered/Not Resolved]
